FAERS Safety Report 5529740-8 (Version None)
Quarter: 2007Q4

REPORT INFORMATION
  Report Type: 
  Country: None (occurrence: None)
  Receive Date: 20071129
  Receipt Date: 20071121
  Transmission Date: 20080405
  Serious: Yes (Hospitalization)
  Sender: FDA-Public Use
  Company Number: JP-ABBOTT-07P-087-0424047-00

PATIENT
  Sex: Female

DRUGS (4)
  1. KLARICID TABLETS [Suspect]
     Indication: ANTIINFLAMMATORY THERAPY
     Route: 048
     Dates: start: 20070831, end: 20070904
  2. L-CARBOCISTEINE [Concomitant]
     Indication: ANTIINFLAMMATORY THERAPY
     Route: 048
     Dates: start: 20070825, end: 20070904
  3. SERRAPEPTASE [Concomitant]
     Indication: ANTIINFLAMMATORY THERAPY
     Route: 048
     Dates: start: 20070825, end: 20070904
  4. HYPNOTIC DRUGS [Concomitant]
     Indication: SLEEP DISORDER

REACTIONS (3)
  - DISORIENTATION [None]
  - SOMNOLENCE [None]
  - URINARY INCONTINENCE [None]
